FAERS Safety Report 6082238-3 (Version None)
Quarter: 2009Q1

REPORT INFORMATION
  Report Type: 
  Country: None (occurrence: None)
  Receive Date: 20090218
  Receipt Date: 20090210
  Transmission Date: 20090719
  Serious: Yes (Hospitalization)
  Sender: FDA-Public Use
  Company Number: US-BIOGENIDEC-2008BI033356

PATIENT
  Age: 45 Year
  Sex: Male

DRUGS (5)
  1. TYSABRI [Suspect]
     Indication: MULTIPLE SCLEROSIS
     Route: 042
     Dates: start: 20070719
  2. TYSABRI [Suspect]
     Route: 042
     Dates: start: 20070719
  3. TYSABRI [Suspect]
     Route: 042
     Dates: start: 20070719
  4. DILANTIN [Concomitant]
     Indication: CONVULSION
     Route: 048
  5. AMANTADINE HCL [Concomitant]
     Indication: DRUG USE FOR UNKNOWN INDICATION

REACTIONS (4)
  - AMNESIA [None]
  - ASTHENIA [None]
  - BLOOD POTASSIUM DECREASED [None]
  - CONVULSION [None]
